FAERS Safety Report 17585128 (Version 1)
Quarter: 2020Q1

REPORT INFORMATION
  Report Type: Report from Study
  Country: US (occurrence: US)
  Receive Date: 20200326
  Receipt Date: 20200326
  Transmission Date: 20200409
  Serious: Yes (Hospitalization)
  Sender: FDA-Public Use
  Company Number: US-BAYER-2020-050457

PATIENT
  Age: 47 Year
  Sex: Male

DRUGS (1)
  1. ADEMPAS [Suspect]
     Active Substance: RIOCIGUAT
     Dosage: UNK

REACTIONS (4)
  - Dyspnoea [None]
  - Influenza like illness [Unknown]
  - Cough [None]
  - Pain in extremity [None]

NARRATIVE: CASE EVENT DATE: 20200323
